FAERS Safety Report 5063676-4 (Version None)
Quarter: 2006Q3

REPORT INFORMATION
  Report Type: 
  Country: None (occurrence: None)
  Receive Date: 20060724
  Receipt Date: 20060712
  Transmission Date: 20061208
  Serious: Yes (Life-Threatening, Hospitalization)
  Sender: FDA-Public Use
  Company Number: T200600767

PATIENT
  Age: 37 Year
  Sex: Female

DRUGS (3)
  1. BONTRIL [Suspect]
     Indication: DECREASED APPETITE
     Dosage: 105 MG, BID,
  2. CYPROTERONE (CYPROTERONE) [Concomitant]
  3. ETHINYL ESTRADIOL TAB [Concomitant]

REACTIONS (15)
  - CARDIAC MURMUR [None]
  - CONGESTIVE CARDIOMYOPATHY [None]
  - CYANOSIS [None]
  - DILATATION ATRIAL [None]
  - DILATATION VENTRICULAR [None]
  - ENDOCARDIAL FIBROSIS [None]
  - EPIGASTRIC DISCOMFORT [None]
  - MITRAL VALVE INCOMPETENCE [None]
  - PALPITATIONS [None]
  - PLEURAL EFFUSION [None]
  - SINUS TACHYCARDIA [None]
  - TACHYPNOEA [None]
  - VENTRICULAR ARRHYTHMIA [None]
  - VENTRICULAR DYSFUNCTION [None]
  - VENTRICULAR HYPOKINESIA [None]
